APPROVED DRUG PRODUCT: LISDEXAMFETAMINE DIMESYLATE
Active Ingredient: LISDEXAMFETAMINE DIMESYLATE
Strength: 40MG
Dosage Form/Route: CAPSULE;ORAL
Application: A218604 | Product #004 | TE Code: AB
Applicant: ELITE LABORATORIES INC
Approved: Nov 15, 2024 | RLD: No | RS: No | Type: RX